FAERS Safety Report 16320081 (Version 1)
Quarter: 2019Q2

REPORT INFORMATION
  Report Type: Spontaneous
  Country: US (occurrence: US)
  Receive Date: 20190516
  Receipt Date: 20190516
  Transmission Date: 20190711
  Serious: No
  Sender: FDA-Public Use
  Company Number: US-HIKMA PHARMACEUTICALS USA INC.-US-H14001-19-00106

PATIENT
  Age: 32 Year
  Sex: Female

DRUGS (1)
  1. PREDNISONE. [Suspect]
     Active Substance: PREDNISONE
     Indication: POLYMYOSITIS
     Dosage: 20MG DAILY AND KEPT TAPERING DOWN UNTIL IT REACHED 2.5MG DAILY
     Route: 048
     Dates: start: 20180726, end: 20181116

REACTIONS (4)
  - Cough [Unknown]
  - Nasal congestion [Unknown]
  - Peripheral swelling [Recovered/Resolved]
  - Sinusitis [Unknown]

NARRATIVE: CASE EVENT DATE: 20181123
